FAERS Safety Report 21010826 (Version 1)
Quarter: 2022Q2

REPORT INFORMATION
  Report Type: Report from Study
  Country: GB (occurrence: GB)
  Receive Date: 20220627
  Receipt Date: 20220627
  Transmission Date: 20220720
  Serious: Yes (Death, Other)
  Sender: FDA-Public Use
  Company Number: GB-PFIZER INC-202200891535

PATIENT
  Sex: Female

DRUGS (2)
  1. CARBOPLATIN [Suspect]
     Active Substance: CARBOPLATIN
     Indication: Ovarian cancer
     Dosage: AUC5 OR AUC6 BY INTRAVENOUS INFUSION OVER 30-60 MIN
     Route: 042
  2. PACLITAXEL [Suspect]
     Active Substance: PACLITAXEL
     Indication: Ovarian cancer
     Dosage: DOSE-FRACTIONATED 80 MG/M2 INFUSION OVER 1H ON DAYS 1, 8, AND 15 OF EACH 21-DAY CYCLE FOR SIX CYCLES
     Route: 042

REACTIONS (1)
  - Death [Fatal]
